FAERS Safety Report 15994802 (Version 1)
Quarter: 2019Q1

REPORT INFORMATION
  Report Type: Spontaneous
  Country: US (occurrence: US)
  Receive Date: 20190221
  Receipt Date: 20190221
  Transmission Date: 20190418
  Serious: Yes (Death)
  Sender: FDA-Public Use
  Company Number: None

PATIENT
  Sex: Female

DRUGS (5)
  1. TRACLEER [Concomitant]
     Active Substance: BOSENTAN
  2. SILDENAFIL 20MG [Suspect]
     Active Substance: SILDENAFIL
     Indication: PULMONARY HYPERTENSION
     Route: 048
  3. BABY ASPIRIN [Concomitant]
     Active Substance: ASPIRIN
  4. LEVOCARNITINE. [Concomitant]
     Active Substance: LEVOCARNITINE
  5. LASIX [Concomitant]
     Active Substance: FUROSEMIDE

REACTIONS (1)
  - Death [None]
